FAERS Safety Report 12797090 (Version 1)
Quarter: 2016Q3

REPORT INFORMATION
  Report Type: Spontaneous
  Country: US (occurrence: US)
  Receive Date: 20160929
  Receipt Date: 20160929
  Transmission Date: 20161109
  Serious: No
  Sender: FDA-Public Use
  Company Number: US-ASTRAZENECA-2006BM05180

PATIENT
  Age: 65 Year
  Sex: Female

DRUGS (10)
  1. COUMADIN [Suspect]
     Active Substance: WARFARIN SODIUM
     Dosage: 5.0MG UNKNOWN
     Route: 065
  2. LANTUS [Concomitant]
     Active Substance: INSULIN GLARGINE
     Route: 058
     Dates: start: 20060329
  3. BYETTA [Suspect]
     Active Substance: EXENATIDE
     Indication: TYPE 2 DIABETES MELLITUS
     Dosage: 10.0UG UNKNOWN
     Route: 058
     Dates: start: 2006
  4. GLUCOPHAGE ^BRISTOL-MYERS SQUIBB^ [Concomitant]
  5. BYETTA [Suspect]
     Active Substance: EXENATIDE
     Indication: TYPE 2 DIABETES MELLITUS
     Dosage: 10.0UG UNKNOWN
     Route: 058
     Dates: start: 2006
  6. BYETTA [Suspect]
     Active Substance: EXENATIDE
     Indication: TYPE 2 DIABETES MELLITUS
     Dosage: 5.0UG UNKNOWN
     Route: 058
     Dates: start: 20060328, end: 2006
  7. ACTOS [Concomitant]
     Active Substance: PIOGLITAZONE HYDROCHLORIDE
  8. BYETTA [Suspect]
     Active Substance: EXENATIDE
     Indication: TYPE 2 DIABETES MELLITUS
     Dosage: 5.0UG UNKNOWN
     Route: 058
  9. LANTUS [Concomitant]
     Active Substance: INSULIN GLARGINE
     Route: 058
     Dates: end: 20060328
  10. MICRONASE [Concomitant]
     Active Substance: GLYBURIDE

REACTIONS (4)
  - Somnolence [Unknown]
  - Drug ineffective [Unknown]
  - Blood glucose decreased [Unknown]
  - Blood viscosity increased [Unknown]

NARRATIVE: CASE EVENT DATE: 20060329
